FAERS Safety Report 17470056 (Version 2)
Quarter: 2020Q3

REPORT INFORMATION
  Report Type: Spontaneous
  Country: PL (occurrence: PL)
  Receive Date: 20200227
  Receipt Date: 20200706
  Transmission Date: 20201102
  Serious: Yes (Other)
  Sender: FDA-Public Use
  Company Number: PL-BAYER-2020-032738

PATIENT
  Age: 68 Year
  Sex: Female
  Weight: 67 kg

DRUGS (1)
  1. ULTRAVIST [Suspect]
     Active Substance: IOPROMIDE
     Indication: CHOLELITHIASIS
     Dosage: 80 ML
     Route: 042
     Dates: start: 20200218, end: 20200218

REACTIONS (4)
  - Skin tightness [Recovered/Resolved]
  - Tenderness [Recovered/Resolved]
  - Vein rupture [Recovered/Resolved]
  - Joint swelling [Recovered/Resolved]

NARRATIVE: CASE EVENT DATE: 20200218
